FAERS Safety Report 9824330 (Version 2)
Quarter: 2014Q1

REPORT INFORMATION
  Report Type: Spontaneous
  Country: US (occurrence: US)
  Receive Date: 20140116
  Receipt Date: 20140116
  Transmission Date: 20141002
  Serious: No
  Sender: FDA-Public Use
  Company Number: US-GILEAD-2011-0037332

PATIENT
  Age: 74 Year
  Sex: Male
  Weight: 98.88 kg

DRUGS (9)
  1. LETAIRIS [Suspect]
     Indication: PRODUCT USED FOR UNKNOWN INDICATION
     Route: 048
     Dates: start: 20110225
  2. LOTREL [Concomitant]
     Indication: HYPERTENSION
  3. HCTZ [Concomitant]
     Indication: HYPERTENSION
  4. SIMVASTATIN [Concomitant]
     Indication: BLOOD CHOLESTEROL
  5. PRO-AIR [Concomitant]
     Indication: CHRONIC OBSTRUCTIVE PULMONARY DISEASE
  6. ADVAIR [Concomitant]
     Indication: CHRONIC OBSTRUCTIVE PULMONARY DISEASE
  7. CLONAZEPAM [Concomitant]
     Indication: ANXIETY
  8. RESTORIL [Concomitant]
     Indication: RESTLESS LEGS SYNDROME
  9. AVODART [Concomitant]

REACTIONS (6)
  - Dizziness [Unknown]
  - Fatigue [Unknown]
  - Pruritus [Unknown]
  - Headache [Unknown]
  - Urticaria [Recovered/Resolved]
  - Nausea [Recovered/Resolved]
